FAERS Safety Report 25382158 (Version 1)
Quarter: 2025Q2

REPORT INFORMATION
  Report Type: Spontaneous
  Country: US (occurrence: US)
  Receive Date: 20250531
  Receipt Date: 20250531
  Transmission Date: 20250717
  Serious: No
  Sender: SANOFI AVENTIS
  Company Number: US-SA-2025SA154773

PATIENT
  Age: 53 Year
  Sex: Female

DRUGS (21)
  1. DUPIXENT [Suspect]
     Active Substance: DUPILUMAB
     Indication: Asthma
     Route: 058
     Dates: start: 20240606
  2. PEPCID [Concomitant]
     Active Substance: FAMOTIDINE
  3. VITAMIN B COMPLEX [DEXPANTHENOL;NICOTINAMIDE;PYRIDOXINE HYDROCHLORIDE; [Concomitant]
  4. AUGMENTIN [Concomitant]
     Active Substance: AMOXICILLIN\CLAVULANATE POTASSIUM
  5. DOXYCYCLINE [Concomitant]
     Active Substance: DOXYCYCLINE
  6. PROBIOTICS NOS [Concomitant]
     Active Substance: PROBIOTICS NOS
  7. ALLEGRA [Concomitant]
     Active Substance: FEXOFENADINE HYDROCHLORIDE
  8. AMLODIPINE BESYLATE [Concomitant]
     Active Substance: AMLODIPINE BESYLATE
  9. XOLAIR [Concomitant]
     Active Substance: OMALIZUMAB
  10. CLINDAMYCIN [Concomitant]
     Active Substance: CLINDAMYCIN
  11. ALBUTEROL SULFATE [Concomitant]
     Active Substance: ALBUTEROL SULFATE
  12. METRONIDAZOLE [Concomitant]
     Active Substance: METRONIDAZOLE
  13. ZYRTEC [Concomitant]
     Active Substance: CETIRIZINE HYDROCHLORIDE
  14. TYLENOL [Concomitant]
     Active Substance: ACETAMINOPHEN
  15. ADVAIR HFA [Concomitant]
     Active Substance: FLUTICASONE PROPIONATE\SALMETEROL XINAFOATE
  16. ADVIL [Concomitant]
     Active Substance: IBUPROFEN
  17. XANAX [Concomitant]
     Active Substance: ALPRAZOLAM
  18. TUMS [Concomitant]
     Active Substance: CALCIUM CARBONATE
  19. PREDNISONE [Concomitant]
     Active Substance: PREDNISONE
  20. FLAXSEED [Concomitant]
     Active Substance: FLAX SEED
  21. VITAMIN D NOS [Concomitant]
     Active Substance: CHOLECALCIFEROL\ERGOCALCIFEROL

REACTIONS (2)
  - Abdominal discomfort [Unknown]
  - Eye disorder [Unknown]

NARRATIVE: CASE EVENT DATE: 20250528
